FAERS Safety Report 5948678-5 (Version None)
Quarter: 2008Q4

REPORT INFORMATION
  Report Type: 
  Country: None (occurrence: None)
  Receive Date: 20081111
  Receipt Date: 20081105
  Transmission Date: 20090506
  Serious: Yes (Hospitalization)
  Sender: FDA-Public Use
  Company Number: US-ASTRAZENECA-2008UW24797

PATIENT
  Age: 60 Year
  Sex: Male

DRUGS (3)
  1. CRESTOR [Suspect]
     Route: 048
     Dates: start: 20080801
  2. CRESTOR [Suspect]
     Route: 048
     Dates: start: 20081027
  3. METOPROLOL SUCCINATE [Concomitant]

REACTIONS (2)
  - CIRCULATORY COLLAPSE [None]
  - PRURITUS [None]
